FAERS Safety Report 5072847-2 (Version None)
Quarter: 2006Q3

REPORT INFORMATION
  Report Type: 
  Country: None (occurrence: None)
  Receive Date: 20060807
  Receipt Date: 20060727
  Transmission Date: 20061208
  Serious: Yes (Death, Hospitalization)
  Sender: FDA-Public Use
  Company Number: US-NOVOPROD-255633

PATIENT

DRUGS (4)
  1. NOVOSEVEN [Suspect]
     Indication: CEREBRAL HAEMORRHAGE
     Dosage: 4.8 MG, SINGLE
     Route: 042
     Dates: start: 20060726, end: 20060726
  2. NOVOSEVEN [Suspect]
     Dosage: 4.8 MG, SINGLE
     Route: 042
     Dates: start: 20060726, end: 20060726
  3. COUMADIN [Concomitant]
     Indication: LUNG TRANSPLANT
     Dosage: UNKNOWN
     Route: 048
  4. LOVENOX                            /00889602/ [Concomitant]
     Indication: LUNG TRANSPLANT
     Dosage: UNKNOWN
     Route: 058

REACTIONS (4)
  - COAGULOPATHY [None]
  - CONCOMITANT DISEASE PROGRESSION [None]
  - CONDITION AGGRAVATED [None]
  - POST PROCEDURAL COMPLICATION [None]
